FAERS Safety Report 9724802 (Version 1)
Quarter: 2013Q4

REPORT INFORMATION
  Report Type: Spontaneous
  Country: US (occurrence: US)
  Receive Date: 20131202
  Receipt Date: 20131202
  Transmission Date: 20140711
  Serious: Yes (Other)
  Sender: FDA-Public Use
  Company Number: US-PFIZER INC-2013340952

PATIENT
  Sex: Female

DRUGS (5)
  1. EFFEXOR [Suspect]
     Indication: DEPRESSION
     Dosage: 75 MG, 2X/DAY
  2. EFFEXOR [Suspect]
     Indication: ANXIETY DISORDER
  3. EFFEXOR [Suspect]
     Indication: PANIC DISORDER
  4. EFFEXOR [Suspect]
     Indication: ANGER
  5. EFFEXOR [Suspect]
     Indication: PERSONALITY CHANGE

REACTIONS (4)
  - Psychotic disorder [Unknown]
  - Memory impairment [Unknown]
  - Drug withdrawal syndrome [Unknown]
  - Off label use [Unknown]
